FAERS Safety Report 19138141 (Version 1)
Quarter: 2021Q2

REPORT INFORMATION
  Report Type: Other
  Country: US (occurrence: US)
  Receive Date: 20210415
  Receipt Date: 20210415
  Transmission Date: 20210717
  Serious: Yes (Other)
  Sender: FDA-Public Use
  Company Number: US-ROCHE-2806482

PATIENT
  Age: 45 Year
  Sex: Male

DRUGS (2)
  1. OCREVUS [Suspect]
     Active Substance: OCRELIZUMAB
     Indication: RELAPSING MULTIPLE SCLEROSIS
  2. OCREVUS [Suspect]
     Active Substance: OCRELIZUMAB
     Indication: MULTIPLE SCLEROSIS
     Dosage: LATER, 600MG INTRAVENOUSLY EVERY 6 MONTHS?HE RECEIVED TREATMENT ON 07/NOV/2018, 07/NOV/2019, 01/MAY/
     Route: 042

REACTIONS (1)
  - Blindness [Unknown]

NARRATIVE: CASE EVENT DATE: 202008
